FAERS Safety Report 11752760 (Version 1)
Quarter: 2015Q4

REPORT INFORMATION
  Report Type: Not Available
  Country: DE (occurrence: FR)
  Receive Date: 20151119
  Receipt Date: 20151119
  Transmission Date: 20160304
  Serious: Yes (Hospitalization)
  Sender: FDA-Public Use
  Company Number: DE-ANIPHARMA-2015-FR-000001

PATIENT
  Age: 71 Year
  Sex: Male

DRUGS (8)
  1. LEVOTHYROX [Concomitant]
     Active Substance: LEVOTHYROXINE
     Dosage: 125MCG
  2. OMEPRAZOLE. [Concomitant]
     Active Substance: OMEPRAZOLE
  3. GAVISCON [Concomitant]
     Active Substance: ALUMINUM HYDROXIDE\MAGNESIUM CARBONATE
  4. XATRAL LP [Suspect]
     Active Substance: ALFUZOSIN
     Dosage: 10MG DAILY
     Dates: start: 20150908, end: 20150924
  5. KARDEGIC [Concomitant]
     Active Substance: ASPIRIN LYSINE
  6. CYMBALTA [Concomitant]
     Active Substance: DULOXETINE HYDROCHLORIDE
  7. FLUVOXAMINE (NON-SPECIFIC) [Suspect]
     Active Substance: FLUVOXAMINE
     Dosage: 100 MG DAILY
     Dates: start: 20150916, end: 20150924
  8. LIPANTHYL [Concomitant]
     Active Substance: FENOFIBRATE
     Dosage: 145MG

REACTIONS (3)
  - Jaundice [Recovering/Resolving]
  - Hepatocellular injury [Recovering/Resolving]
  - Cholestasis [Recovering/Resolving]
